APPROVED DRUG PRODUCT: LOGILIA
Active Ingredient: ULIPRISTAL ACETATE
Strength: 30MG
Dosage Form/Route: TABLET;ORAL
Application: A207952 | Product #001 | TE Code: AB
Applicant: TEVA PHARMACEUTICALS USA
Approved: Feb 13, 2017 | RLD: No | RS: No | Type: RX